FAERS Safety Report 7814812-5 (Version None)
Quarter: 2011Q4

REPORT INFORMATION
  Report Type: 
  Country: None (occurrence: None)
  Receive Date: 20111014
  Receipt Date: 20111004
  Transmission Date: 20120403
  Serious: Yes (Hospitalization)
  Sender: FDA-Public Use
  Company Number: PHHO2011US16730

PATIENT
  Sex: Male
  Weight: 106.5 kg

DRUGS (3)
  1. AFINITOR [Suspect]
     Indication: METASTATIC RENAL CELL CARCINOMA
     Dosage: UNK
     Route: 048
     Dates: end: 20110927
  2. MINOCYCLINE HCL [Concomitant]
     Indication: RASH
     Dosage: UNK
     Dates: start: 20110919
  3. DOXYCYCLINE [Suspect]
     Dosage: 100 MG, BID
     Route: 048
     Dates: start: 20110919, end: 20110927

REACTIONS (2)
  - HAEMATOCHEZIA [None]
  - ABDOMINAL PAIN [None]
